FAERS Safety Report 19039823 (Version 2)
Quarter: 2021Q2

REPORT INFORMATION
  Report Type: Spontaneous
  Country: DE (occurrence: DE)
  Receive Date: 20210322
  Receipt Date: 20210422
  Transmission Date: 20210717
  Serious: Yes (Hospitalization, Other)
  Sender: FDA-Public Use
  Company Number: DE-BAUSCH-BL-2021-008066

PATIENT
  Age: 47 Year
  Sex: Male

DRUGS (3)
  1. SHINGRIX [Suspect]
     Active Substance: RECOMBINANT VARICELLA ZOSTER VIRUS (VZV) GLYCOPROTEIN E
     Route: 065
     Dates: start: 2020
  2. SHINGRIX [Suspect]
     Active Substance: RECOMBINANT VARICELLA ZOSTER VIRUS (VZV) GLYCOPROTEIN E
     Indication: PROPHYLAXIS
     Route: 065
     Dates: start: 2020
  3. ACICLOVIR [Suspect]
     Active Substance: ACYCLOVIR
     Indication: HERPES ZOSTER
     Route: 042

REACTIONS (4)
  - Herpes ophthalmic [Unknown]
  - Vaccination failure [Unknown]
  - Product administered to patient of inappropriate age [Unknown]
  - Alopecia [Unknown]
